FAERS Safety Report 6229876-2 (Version None)
Quarter: 2009Q2

REPORT INFORMATION
  Report Type: 
  Country: None (occurrence: None)
  Receive Date: 20090615
  Receipt Date: 20090602
  Transmission Date: 20091009
  Serious: Yes (Other)
  Sender: FDA-Public Use
  Company Number: BE-ELI_LILLY_AND_COMPANY-BE200906000673

PATIENT
  Sex: Female

DRUGS (1)
  1. CYMBALTA [Suspect]
     Dates: start: 20060101

REACTIONS (5)
  - CONVERSION DISORDER [None]
  - DIABETES MELLITUS [None]
  - INSOMNIA [None]
  - MOOD SWINGS [None]
  - RESTLESS LEGS SYNDROME [None]
